FAERS Safety Report 9692272 (Version 2)
Quarter: 2014Q1

REPORT INFORMATION
  Report Type: Spontaneous
  Country: US (occurrence: US)
  Receive Date: 20131118
  Receipt Date: 20140205
  Transmission Date: 20141002
  Serious: Yes (Hospitalization)
  Sender: FDA-Public Use
  Company Number: US-BRISTOL-MYERS SQUIBB COMPANY-19798370

PATIENT
  Age: 59 Year
  Sex: Female

DRUGS (17)
  1. BYDUREON [Suspect]
     Indication: DIABETES MELLITUS INADEQUATE CONTROL
     Route: 058
     Dates: start: 201308
  2. HUMALOG [Concomitant]
  3. LANTUS [Concomitant]
  4. ASA [Concomitant]
  5. TRILEPTAL [Concomitant]
     Dosage: 1DF: 300 UNITS NOS
  6. LOSARTAN [Concomitant]
     Dosage: 1DF: 100 UNITS NOS
  7. ZIPRASIDONE [Concomitant]
     Dosage: 1DF: 40 UNITS NOS
  8. AMLODIPINE [Concomitant]
     Dosage: 1DF: 10 UNITS NOS
  9. DIGOXIN [Concomitant]
     Dosage: 1DF: 0.125 UNITS NOS
  10. FOLVITE [Concomitant]
  11. ZETIA [Concomitant]
     Dosage: 1DF: 10 UNITS NOS
  12. FUROSEMIDE [Concomitant]
     Dosage: 1DF: 40 UNITS NOS
  13. PLAVIX [Concomitant]
     Dosage: 1DF: 75 UNITS NOS
  14. PROTONIX [Concomitant]
     Dosage: 1DF: 40 UNITS NOS
  15. SYNTHROID [Concomitant]
     Dosage: 1DF: 100 UNITS NOS
  16. VITAMIN D3 [Concomitant]
     Dosage: 1DF: 2000 UNITS NOS
  17. VITAMIN E [Concomitant]
     Dosage: 1DF: 400 UNITS NOS

REACTIONS (2)
  - Coombs positive haemolytic anaemia [Unknown]
  - Dyspnoea [Unknown]
